FAERS Safety Report 17020173 (Version 1)
Quarter: 2019Q4

REPORT INFORMATION
  Report Type: Spontaneous
  Country: US (occurrence: US)
  Receive Date: 20191112
  Receipt Date: 20191112
  Transmission Date: 20200122
  Serious: No
  Sender: FDA-Public Use
  Company Number: US-JNJFOC-20191106412

PATIENT
  Sex: Female

DRUGS (1)
  1. ZYTIGA [Suspect]
     Active Substance: ABIRATERONE ACETATE
     Indication: ACCIDENTAL EXPOSURE TO PRODUCT
     Dosage: 250 MG
     Route: 048
     Dates: start: 20191022

REACTIONS (2)
  - Exposure during pregnancy [Unknown]
  - Accidental exposure to product [Not Recovered/Not Resolved]

NARRATIVE: CASE EVENT DATE: 20191104
